FAERS Safety Report 10952689 (Version 1)
Quarter: 2015Q1

REPORT INFORMATION
  Report Type: Spontaneous
  Country: US (occurrence: None)
  Receive Date: 20150324
  Receipt Date: 20150324
  Transmission Date: 20150721
  Serious: Yes (Hospitalization)
  Sender: FDA-Public Use
  Company Number: None

PATIENT
  Age: 13 Year
  Sex: Male
  Weight: 36.29 kg

DRUGS (5)
  1. VINCRISTINE [Concomitant]
     Active Substance: VINCRISTINE
  2. METHOTREXATE 50 MG [Suspect]
     Active Substance: METHOTREXATE
     Dosage: 1.5 TABS ,WF 2 TABS T/TH/S/S, FREQUENCY: SEE ABOVE, TAKEN BY MOUTH
     Route: 048
  3. ADVIL [Concomitant]
     Active Substance: IBUPROFEN
  4. TYLENOL [Concomitant]
     Active Substance: ACETAMINOPHEN
  5. PREDNISONE. [Concomitant]
     Active Substance: PREDNISONE

REACTIONS (3)
  - Hepatic function abnormal [None]
  - Jaundice [None]
  - Blood bilirubin increased [None]

NARRATIVE: CASE EVENT DATE: 20150305
